FAERS Safety Report 7507337-8 (Version None)
Quarter: 2011Q2

REPORT INFORMATION
  Report Type: 
  Country: None (occurrence: None)
  Receive Date: 20110526
  Receipt Date: 20110520
  Transmission Date: 20111010
  Serious: Yes (Hospitalization)
  Sender: FDA-Public Use
  Company Number: US-B.I. PHARMACEUTICALS,INC./RIDGEFIELD-2011-BP-12697BP

PATIENT
  Sex: Female

DRUGS (4)
  1. SYNTHROID [Concomitant]
  2. AGGRENOX [Suspect]
     Indication: CEREBROVASCULAR ACCIDENT
  3. DEXILANT [Concomitant]
  4. SIMVASTATIN [Concomitant]

REACTIONS (1)
  - ADVERSE DRUG REACTION [None]
